FAERS Safety Report 10387914 (Version 1)
Quarter: 2014Q1

REPORT INFORMATION
  Report Type: Spontaneous
  Country: US (occurrence: None)
  Receive Date: 20140306
  Receipt Date: 20140306
  Transmission Date: 20141002
  Serious: Yes (Hospitalization)
  Sender: FDA-Public Use
  Company Number: 163-21880-13121290

PATIENT
  Age: 53 Year
  Sex: Male
  Weight: 72.6 kg

DRUGS (9)
  1. REVLIMID (LENALIDOMIDE) (25 MILLIGRAM, CAPSULES) [Suspect]
     Indication: PLASMA CELL MYELOMA
     Route: 048
     Dates: start: 201007
  2. CLINDAMYCIN PH (CLINDAMYCIN PHOSPHATE) [Concomitant]
  3. DOXYCYCLINE HYC (DOXYCYCLINE HYCLATE) [Concomitant]
  4. GABAPENTIN [Concomitant]
  5. AZITHROMYCIN [Concomitant]
  6. CLOBETASOL [Concomitant]
  7. NEXIUM (ESOMEPRAZOLE) [Concomitant]
  8. CRESTOR (ROSUVASTATIN) [Concomitant]
  9. AMITRIPTYLINE HCL (AMITRIPTYLINE HYDROCHLORIDE) [Concomitant]

REACTIONS (1)
  - Pneumonia [None]
